FAERS Safety Report 11653877 (Version 5)
Quarter: 2015Q4

REPORT INFORMATION
  Report Type: Spontaneous
  Country: LY (occurrence: LY)
  Receive Date: 20151022
  Receipt Date: 20151119
  Transmission Date: 20160304
  Serious: Yes (Death)
  Sender: FDA-Public Use
  Company Number: LY-ABBVIE-15P-097-1484289-00

PATIENT
  Age: 29 Week
  Sex: Female
  Weight: 8.5 kg

DRUGS (4)
  1. SURVANTA [Suspect]
     Active Substance: BERACTANT
     Indication: NEONATAL RESPIRATORY DISTRESS SYNDROME
     Dosage: 2 DOSES (DAILY DOSE: 3 CUBIC CENTIMETER)
     Route: 065
     Dates: start: 20150831, end: 20150831
  2. CLAFORAN [Concomitant]
     Active Substance: CEFOTAXIME SODIUM
     Indication: ANTIBIOTIC THERAPY
     Route: 042
     Dates: start: 20150831
  3. AMPICILLIN [Concomitant]
     Active Substance: AMPICILLIN
     Indication: ANTIBIOTIC THERAPY
     Route: 042
     Dates: start: 20150831
  4. DEXAMETHASONE. [Concomitant]
     Active Substance: DEXAMETHASONE
     Indication: FLUID REPLACEMENT
     Dosage: 10% DEXALMETHASONE 4CC/HR
     Route: 042
     Dates: start: 20150813

REACTIONS (2)
  - Pulmonary haemorrhage [Fatal]
  - Anaemia [Fatal]

NARRATIVE: CASE EVENT DATE: 20150906
